FAERS Safety Report 14151916 (Version 2)
Quarter: 2017Q4

REPORT INFORMATION
  Report Type: Spontaneous
  Country: ZA (occurrence: ZA)
  Receive Date: 20171102
  Receipt Date: 20171124
  Transmission Date: 20180321
  Serious: Yes (Hospitalization)
  Sender: FDA-Public Use
  Company Number: PHHY2017ZA159848

PATIENT
  Age: 83 Year
  Sex: Male

DRUGS (1)
  1. HEXA-BLOK [Suspect]
     Active Substance: ATENOLOL
     Indication: HYPERTENSION
     Dosage: 50 MG, UNK
     Route: 048
     Dates: end: 20171101

REACTIONS (2)
  - Thrombosis [Unknown]
  - Stoma site infection [Recovering/Resolving]

NARRATIVE: CASE EVENT DATE: 201711
